FAERS Safety Report 15090233 (Version 1)
Quarter: 2018Q2

REPORT INFORMATION
  Report Type: Spontaneous
  Country: US (occurrence: US)
  Receive Date: 20180608
  Receipt Date: 20180608
  Transmission Date: 20180711
  Serious: Yes (Other)
  Sender: FDA-Public Use
  Company Number: None

PATIENT
  Age: 51 Year
  Sex: Female
  Weight: 83.25 kg

DRUGS (2)
  1. BUPROPION XL (GENERIC FOR WELLBUTRIN XL); DECREASED OVER 3 MOS . [Suspect]
     Active Substance: BUPROPION HYDROCHLORIDE
     Indication: DEPRESSION
     Route: 048
  2. TIROSINT [Concomitant]
     Active Substance: LEVOTHYROXINE SODIUM

REACTIONS (3)
  - Antipsychotic drug level above therapeutic [None]
  - Intentional product use issue [None]
  - Cutaneous lupus erythematosus [None]

NARRATIVE: CASE EVENT DATE: 20170619
